FAERS Safety Report 7086381-1 (Version None)
Quarter: 2010Q4

REPORT INFORMATION
  Report Type: 
  Country: None (occurrence: None)
  Receive Date: 20101028
  Receipt Date: 20101019
  Transmission Date: 20110411
  Serious: Yes (Hospitalization, Disabling)
  Sender: FDA-Public Use
  Company Number: OSCN-NO-0604S-0094

PATIENT
  Age: 55 Year
  Sex: Female

DRUGS (2)
  1. OMNISCAN [Suspect]
     Indication: PRODUCT USED FOR UNKNOWN INDICATION
     Dosage: 50 ML, SINGLE DOSE, I.V. ; 50 ML, SINGLE DOSE, I.V.
     Route: 042
     Dates: start: 20020114, end: 20020114
  2. OMNISCAN [Suspect]
     Indication: PRODUCT USED FOR UNKNOWN INDICATION
     Dosage: 50 ML, SINGLE DOSE, I.V. ; 50 ML, SINGLE DOSE, I.V.
     Route: 042
     Dates: start: 20040629, end: 20040629

REACTIONS (3)
  - ABDOMINAL PAIN [None]
  - DYSPNOEA [None]
  - NEPHROGENIC SYSTEMIC FIBROSIS [None]
